FAERS Safety Report 8237943 (Version 4)
Quarter: 2014Q1

REPORT INFORMATION
  Report Type: Spontaneous
  Country: US (occurrence: US)
  Receive Date: 20111109
  Receipt Date: 20140107
  Transmission Date: 20141002
  Serious: Yes (Hospitalization, Other)
  Sender: FDA-Public Use
  Company Number: US-BAYER-2011-105677

PATIENT
  Age: 18 Year
  Sex: Female
  Weight: 54.42 kg

DRUGS (10)
  1. YAZ [Suspect]
     Indication: CONTRACEPTION
     Dosage: UNK
     Route: 048
     Dates: start: 200711, end: 201109
  2. YAZ [Suspect]
     Indication: MENSTRUAL CYCLE MANAGEMENT
  3. YASMIN [Suspect]
     Indication: CONTRACEPTION
     Dosage: UNK
     Route: 048
     Dates: start: 200711, end: 201109
  4. YASMIN [Suspect]
     Indication: MENSTRUAL CYCLE MANAGEMENT
  5. OCELLA [Suspect]
     Indication: CONTRACEPTION
     Dosage: UNK
     Dates: start: 200711, end: 201109
  6. Z-PAK [Concomitant]
     Dosage: UNK
     Dates: start: 20090914
  7. MOBIC [Concomitant]
     Dosage: 15 MG, UNK
     Dates: start: 20090914
  8. ALLEGRA [Concomitant]
     Dosage: 180 MG, UNK
     Dates: start: 20090914
  9. LORTAB [Concomitant]
     Dosage: 5/500MG
     Dates: start: 20090926
  10. HYDROCODONE [Concomitant]

REACTIONS (5)
  - Gallbladder disorder [None]
  - Cholecystitis chronic [None]
  - Injury [None]
  - Pain [None]
  - Emotional distress [None]
